FAERS Safety Report 4430827-1 (Version None)
Quarter: 2004Q3

REPORT INFORMATION
  Report Type: 
  Country: None (occurrence: None)
  Receive Date: 20040823
  Receipt Date: 20030929
  Transmission Date: 20050211
  Serious: Yes (Hospitalization, Disabling, Other)
  Sender: FDA-Public Use
  Company Number: US-MERCK-0310USA00122

PATIENT
  Age: 40 Year
  Sex: Female
  Weight: 61 kg

DRUGS (8)
  1. REMICADE [Concomitant]
     Route: 065
  2. INJECTABLE GOLD (UNSPECIFIED) [Concomitant]
     Route: 065
  3. [THERAPY UNSPECIFIED] [Concomitant]
     Indication: PAIN
     Route: 065
     Dates: start: 19951201, end: 20001101
  4. FOLIC ACID [Concomitant]
     Route: 065
  5. METHOTREXATE [Concomitant]
     Indication: ARTHRITIS
     Route: 065
     Dates: start: 19951201, end: 20040407
  6. METHOTREXATE [Concomitant]
     Route: 065
     Dates: start: 20040414
  7. VIOXX [Suspect]
     Indication: PAIN
     Route: 048
     Dates: start: 20001101
  8. VIOXX [Suspect]
     Route: 048
     Dates: start: 20001101, end: 20040331

REACTIONS (16)
  - ABDOMINAL PAIN UPPER [None]
  - ALOPECIA [None]
  - ANAEMIA [None]
  - ARTHRITIS [None]
  - ARTHROPATHY [None]
  - BRONCHITIS [None]
  - CARDIAC DISORDER [None]
  - CARDIAC FLUTTER [None]
  - DYSMENORRHOEA [None]
  - EMOTIONAL DISTRESS [None]
  - HEADACHE [None]
  - MENORRHAGIA [None]
  - NAUSEA [None]
  - POSTOPERATIVE ILEUS [None]
  - SWELLING [None]
  - UTERINE LEIOMYOMA [None]
